FAERS Safety Report 7989719-3 (Version None)
Quarter: 2011Q4

REPORT INFORMATION
  Report Type: 
  Country: None (occurrence: None)
  Receive Date: 20111219
  Receipt Date: 20111205
  Transmission Date: 20120403
  Serious: Yes (Other)
  Sender: FDA-Public Use
  Company Number: US-ELI_LILLY_AND_COMPANY-US201110001054

PATIENT
  Age: 78 Year
  Sex: Female
  Weight: 56.9 kg

DRUGS (2)
  1. NITROGLYCERIN [Concomitant]
     Indication: CHEST PAIN
     Dosage: UNK, PRN
  2. FORTEO [Suspect]
     Indication: OSTEOPOROSIS
     Dosage: 20 UG, QD
     Route: 065
     Dates: start: 20110721, end: 20110827

REACTIONS (10)
  - VERTIGO POSITIONAL [None]
  - LOSS OF CONSCIOUSNESS [None]
  - CONTUSION [None]
  - HAEMORRHAGE [None]
  - EYE HAEMORRHAGE [None]
  - DIZZINESS [None]
  - ANGIOPATHY [None]
  - FATIGUE [None]
  - VASCULAR INJURY [None]
  - FEELING ABNORMAL [None]
